FAERS Safety Report 5107843-X (Version None)
Quarter: 2006Q3

REPORT INFORMATION
  Report Type: 
  Country: None (occurrence: None)
  Receive Date: 20060919
  Receipt Date: 20060908
  Transmission Date: 20061208
  Serious: Yes (Other)
  Sender: FDA-Public Use
  Company Number: US-JNJFOC-20041102707

PATIENT
  Sex: Male
  Weight: 63.46 kg

DRUGS (8)
  1. CONCERTA [Suspect]
     Indication: ATTENTION DEFICIT/HYPERACTIVITY DISORDER
  2. COMBIVIR [Interacting]
     Indication: HIV INFECTION
     Route: 048
     Dates: end: 20030101
  3. LITHIUM CARBONATE [Interacting]
     Indication: BIPOLAR I DISORDER
     Dosage: 900 MG PER DAY
     Route: 048
     Dates: end: 20030101
  4. SEPTRA [Interacting]
     Indication: DRUG USE FOR UNKNOWN INDICATION
  5. EFAVIRENZ [Interacting]
     Indication: HIV INFECTION
  6. SIMVASTATIN [Interacting]
     Indication: DRUG USE FOR UNKNOWN INDICATION
     Dosage: 80 MG PER DAY
     Route: 048
     Dates: start: 20031007
  7. ZYPREXA [Suspect]
     Indication: DRUG USE FOR UNKNOWN INDICATION
  8. OLANZAPINE [Concomitant]

REACTIONS (6)
  - ASTHENIA [None]
  - DIARRHOEA [None]
  - DRUG INTERACTION [None]
  - NAUSEA [None]
  - THERAPEUTIC AGENT TOXICITY [None]
  - VOMITING [None]
